FAERS Safety Report 10890985 (Version 2)
Quarter: 2015Q2

REPORT INFORMATION
  Report Type: Spontaneous
  Country: US (occurrence: US)
  Receive Date: 20150305
  Receipt Date: 20150402
  Transmission Date: 20150821
  Serious: Yes (Other)
  Sender: FDA-Public Use
  Company Number: DE-ASTRAZENECA-2015SE20509

PATIENT
  Age: 47 Year
  Sex: Male

DRUGS (10)
  1. VIMOVO [Suspect]
     Active Substance: ESOMEPRAZOLE MAGNESIUM\NAPROXEN
     Indication: NECK PAIN
     Dosage: 1 DOSAGE FORM, TWO TIMES A DAY, USING VIMOVO SOMETIME IN THE LAST TWO WEEKS
     Route: 048
  2. VIMOVO [Suspect]
     Active Substance: ESOMEPRAZOLE MAGNESIUM\NAPROXEN
     Indication: CARPAL TUNNEL SYNDROME
     Dosage: 1 DOSAGE FORM, TWO TIMES A DAY, USING VIMOVO SOMETIME IN THE LAST TWO WEEKS
     Route: 048
  3. VIMOVO [Suspect]
     Active Substance: ESOMEPRAZOLE MAGNESIUM\NAPROXEN
     Indication: PAIN
     Dosage: 1 DOSAGE FORM, TWO TIMES A DAY, USING VIMOVO SOMETIME IN THE LAST TWO WEEKS
     Route: 048
  4. VIMOVO [Suspect]
     Active Substance: ESOMEPRAZOLE MAGNESIUM\NAPROXEN
     Indication: NECK PAIN
     Dosage: SEP. DOSAGES/ INTERVAL: 2 IN 1 DAYS
     Route: 048
  5. VIMOVO [Suspect]
     Active Substance: ESOMEPRAZOLE MAGNESIUM\NAPROXEN
     Indication: CARPAL TUNNEL SYNDROME
     Dosage: SEP. DOSAGES/ INTERVAL: 2 IN 1 DAYS
     Route: 048
  6. VIMOVO [Suspect]
     Active Substance: ESOMEPRAZOLE MAGNESIUM\NAPROXEN
     Indication: BACK PAIN
     Dosage: 1 DOSAGE FORM, TWO TIMES A DAY, USING VIMOVO SOMETIME IN THE LAST TWO WEEKS
     Route: 048
  7. VIMOVO [Suspect]
     Active Substance: ESOMEPRAZOLE MAGNESIUM\NAPROXEN
     Indication: BACK PAIN
     Dosage: SEP. DOSAGES/ INTERVAL: 2 IN 1 DAYS
     Route: 048
  8. VIMOVO [Suspect]
     Active Substance: ESOMEPRAZOLE MAGNESIUM\NAPROXEN
     Indication: PAIN
     Dosage: SEP. DOSAGES/ INTERVAL: 2 IN 1 DAYS
     Route: 048
  9. SOMA [Concomitant]
     Active Substance: CARISOPRODOL
  10. HYDROCODONE [Concomitant]
     Active Substance: HYDROCODONE

REACTIONS (8)
  - Vasculitis [Recovered/Resolved]
  - Oedema peripheral [Recovered/Resolved]
  - Rash [Recovered/Resolved]
  - Cough [Unknown]
  - Chest pain [Unknown]
  - Palpitations [Recovered/Resolved]
  - Dyspnoea [Unknown]
  - Pain in extremity [Recovered/Resolved]
